FAERS Safety Report 7137907-0 (Version None)
Quarter: 2010Q4

REPORT INFORMATION
  Report Type: 
  Country: None (occurrence: None)
  Receive Date: 20101206
  Receipt Date: 20101124
  Transmission Date: 20110411
  Serious: Yes (Hospitalization)
  Sender: FDA-Public Use
  Company Number: DE-SANOFI-AVENTIS-2010SA070436

PATIENT
  Age: 72 Year
  Sex: Male
  Weight: 90 kg

DRUGS (7)
  1. ELOXATIN [Suspect]
     Indication: RECTAL CANCER
     Route: 042
     Dates: start: 20100212, end: 20100212
  2. ELOXATIN [Suspect]
     Route: 042
     Dates: start: 20100312, end: 20100312
  3. XELODA [Suspect]
     Indication: RECTAL CANCER
     Route: 048
     Dates: start: 20100210
  4. XELODA [Suspect]
     Route: 048
     Dates: end: 20100312
  5. XELODA [Suspect]
     Route: 048
     Dates: end: 20100722
  6. THERAPEUTIC RADIOPHARMACEUTICALS [Suspect]
     Indication: RECTAL CANCER
     Dosage: 1.8 GY IN 23 FRACTIONS (CUMMULATIVE 52.2 GY)
     Dates: start: 20100210, end: 20100313
  7. CYMBALTA [Concomitant]
     Route: 048
     Dates: start: 20100101, end: 20100101

REACTIONS (3)
  - IMPAIRED HEALING [None]
  - WOUND COMPLICATION [None]
  - WOUND INFECTION STAPHYLOCOCCAL [None]
